FAERS Safety Report 8308826-9 (Version None)
Quarter: 2012Q2

REPORT INFORMATION
  Report Type: 
  Country: None (occurrence: None)
  Receive Date: 20120424
  Receipt Date: 20120413
  Transmission Date: 20120825
  Serious: Yes (Hospitalization)
  Sender: FDA-Public Use
  Company Number: US-ACTELION-A-NJ2012-62446

PATIENT

DRUGS (3)
  1. PREDNISONE TAB [Concomitant]
  2. TRACLEER [Suspect]
     Indication: PULMONARY ARTERIAL HYPERTENSION
     Dosage: UNK
     Route: 048
     Dates: start: 20090902
  3. LASIX [Concomitant]

REACTIONS (5)
  - PAIN [None]
  - VOMITING [None]
  - INTESTINAL RESECTION [None]
  - PYREXIA [None]
  - NAUSEA [None]
